FAERS Safety Report 7347700-1 (Version None)
Quarter: 2011Q1

REPORT INFORMATION
  Report Type: 
  Country: None (occurrence: None)
  Receive Date: 20110311
  Receipt Date: 20110301
  Transmission Date: 20110831
  Serious: Yes (Other)
  Sender: FDA-Public Use
  Company Number: B0703309A

PATIENT
  Age: 81 Year
  Sex: Male

DRUGS (4)
  1. ANALGESIC [Concomitant]
  2. NEXIUM [Concomitant]
  3. IMOVANE [Concomitant]
  4. ARIXTRA [Suspect]
     Indication: HEPARIN-INDUCED THROMBOCYTOPENIA
     Dosage: 2.5MG PER DAY
     Route: 058
     Dates: start: 20101210, end: 20101217

REACTIONS (5)
  - ANAEMIA [None]
  - THROMBOCYTOSIS [None]
  - HAEMATURIA [None]
  - OFF LABEL USE [None]
  - HAEMATOMA [None]
